FAERS Safety Report 24217781 (Version 5)
Quarter: 2025Q1

REPORT INFORMATION
  Report Type: Spontaneous
  Country: US (occurrence: US)
  Receive Date: 20240816
  Receipt Date: 20250117
  Transmission Date: 20250409
  Serious: No
  Sender: PFIZER
  Company Number: US-PFIZER INC-202400234114

PATIENT
  Age: 6 Year
  Sex: Male
  Weight: 16.78 kg

DRUGS (2)
  1. GENOTROPIN [Suspect]
     Active Substance: SOMATROPIN
     Indication: Short stature
     Dosage: DAILY DOSE 0.3 MG TUES + THUR MG/DAY 7 DAYS/WK
  2. GENOTROPIN [Suspect]
     Active Substance: SOMATROPIN
     Dosage: DAILY DOSE 0.4 MG M, W, F, SA, SU MG/DAY 7 DAYS/WK

REACTIONS (5)
  - Incorrect dose administered by device [Unknown]
  - Device power source issue [Unknown]
  - Device information output issue [Unknown]
  - Device mechanical issue [Unknown]
  - Expired device used [Unknown]
